FAERS Safety Report 20717274 (Version 3)
Quarter: 2024Q1

REPORT INFORMATION
  Report Type: Spontaneous
  Country: US (occurrence: US)
  Receive Date: 20220417
  Receipt Date: 20240227
  Transmission Date: 20240410
  Serious: No
  Sender: FDA-Public Use
  Company Number: US-SA-SAC20220414000238

PATIENT
  Age: 65 Year
  Sex: Male

DRUGS (4)
  1. DUPIXENT [Suspect]
     Active Substance: DUPILUMAB
     Indication: Nasal polyps
     Dosage: 300 MG, QOW
     Route: 058
     Dates: start: 202009
  2. DUPIXENT [Suspect]
     Active Substance: DUPILUMAB
     Indication: Asthma
     Dosage: 300 MG, QOW
     Route: 058
     Dates: start: 20201030
  3. TRETINOIN [Concomitant]
     Active Substance: TRETINOIN
  4. DESONIDE [Concomitant]
     Active Substance: DESONIDE

REACTIONS (3)
  - Epistaxis [Unknown]
  - Hypotrichosis [Not Recovered/Not Resolved]
  - Erythema [Unknown]
